FAERS Safety Report 12642142 (Version 2)
Quarter: 2017Q2

REPORT INFORMATION
  Report Type: Report from Study
  Country: None (occurrence: CA)
  Receive Date: 20160810
  Receipt Date: 20170524
  Transmission Date: 20170830
  Serious: Yes (Hospitalization, Other)
  Sender: FDA-Public Use
  Company Number: CA-ABBVIE-16K-028-1695154-00

PATIENT
  Age: 68 Year
  Sex: Female

DRUGS (2)
  1. HUMIRA [Suspect]
     Active Substance: ADALIMUMAB
     Indication: PSORIATIC ARTHROPATHY
     Route: 058
     Dates: start: 20140514, end: 201607
  2. HUMIRA [Suspect]
     Active Substance: ADALIMUMAB
     Route: 058
     Dates: start: 20160803

REACTIONS (8)
  - Vomiting [Recovered/Resolved]
  - Influenza [Unknown]
  - Carotid artery occlusion [Not Recovered/Not Resolved]
  - Carotid arteriosclerosis [Not Recovered/Not Resolved]
  - Dizziness [Unknown]
  - Diarrhoea haemorrhagic [Recovering/Resolving]
  - Nausea [Recovered/Resolved]
  - Food contamination [Unknown]

NARRATIVE: CASE EVENT DATE: 2016
